FAERS Safety Report 9248033 (Version 4)
Quarter: 2013Q4

REPORT INFORMATION
  Report Type: Spontaneous
  Country: US (occurrence: US)
  Receive Date: 20130423
  Receipt Date: 20131227
  Transmission Date: 20140711
  Serious: Yes (Hospitalization)
  Sender: FDA-Public Use
  Company Number: US-ASTRAZENECA-2013SE27268

PATIENT
  Age: 73 Year
  Sex: Female

DRUGS (35)
  1. NEXIUM [Suspect]
     Indication: GASTROOESOPHAGEAL REFLUX DISEASE
     Dosage: ONCE A DAY
     Route: 048
  2. NEXIUM [Suspect]
     Indication: GASTROOESOPHAGEAL REFLUX DISEASE
     Route: 048
     Dates: start: 200703, end: 2010
  3. NEXIUM [Suspect]
     Indication: GASTROOESOPHAGEAL REFLUX DISEASE
     Route: 048
     Dates: start: 20070328
  4. PRILOSEC [Suspect]
     Indication: GASTROOESOPHAGEAL REFLUX DISEASE
     Route: 048
     Dates: start: 200408, end: 200411
  5. PRILOSEC [Suspect]
     Indication: GASTROOESOPHAGEAL REFLUX DISEASE
     Route: 048
     Dates: start: 20041008
  6. PRILOSEC [Suspect]
     Indication: GASTROOESOPHAGEAL REFLUX DISEASE
     Route: 048
     Dates: start: 20040811
  7. ZANTAC/RANITIDINE [Concomitant]
     Dates: start: 20041118
  8. MULTIVITAMIN [Concomitant]
     Route: 048
  9. NAPROXEN [Concomitant]
     Route: 048
     Dates: start: 20110725
  10. ATENOLOL [Concomitant]
     Route: 048
     Dates: start: 20030707
  11. CALTRATE + D [Concomitant]
     Dosage: CHEWABLE 600 MG (1,500 MG) - 400 UNIT, ONCE BID
     Route: 048
  12. CIPRO [Concomitant]
     Route: 048
     Dates: start: 20130731
  13. DILANTIN [Concomitant]
     Route: 048
     Dates: start: 20130506
  14. DILANTIN [Concomitant]
     Dates: start: 20030106
  15. FISH OIL [Concomitant]
     Route: 048
  16. LASIX [Concomitant]
     Dosage: TAKE ONE TABLET Q AM AND 1/2 TABLET (20 MG) Q AM
     Route: 048
  17. LASIX [Concomitant]
     Dates: start: 20030106
  18. MOBIC [Concomitant]
     Route: 048
  19. PAXIL [Concomitant]
     Route: 048
     Dates: start: 20040105
  20. PAXIL [Concomitant]
     Route: 048
     Dates: start: 20030113
  21. PEPCID [Concomitant]
     Route: 048
     Dates: start: 20130113
  22. POTASSIUM CHLORIDE [Concomitant]
     Route: 048
     Dates: start: 20030113
  23. RESTORIL [Concomitant]
     Route: 048
     Dates: start: 20030108
  24. RESTORIL [Concomitant]
     Dates: start: 20031113
  25. SIMVASTATIN [Concomitant]
     Route: 048
  26. SYMBICORT [Concomitant]
     Dosage: 160-4.5 MCG, INHALE 2 PUFFS, TWO TIMES A DAY
     Route: 055
  27. SYNTHROID [Concomitant]
     Route: 048
  28. SYNTHROID [Concomitant]
     Dates: start: 20030106
  29. PROPOXY N/ APAP [Concomitant]
     Dosage: 10/650
     Dates: start: 20100222
  30. NEURONTIN [Concomitant]
     Dates: start: 20030106
  31. TOPROL XL [Concomitant]
     Route: 048
     Dates: start: 20030106
  32. CEPHALEXIN [Concomitant]
     Dates: start: 20030609
  33. FAMOTIDINE [Concomitant]
     Indication: GASTROOESOPHAGEAL REFLUX DISEASE
     Dates: start: 2003, end: 200908
  34. MYLANTA [Concomitant]
     Dosage: OCCASIONALLY
  35. PEPCID OTC [Concomitant]
     Dosage: OCCASIONALLY

REACTIONS (14)
  - Foot fracture [Unknown]
  - Upper limb fracture [Unknown]
  - Wrist fracture [Unknown]
  - Ulna fracture [Recovering/Resolving]
  - Osteoporosis [Unknown]
  - Bone disorder [Unknown]
  - Arthritis [Unknown]
  - Bipolar disorder [Unknown]
  - Chronic obstructive pulmonary disease [Unknown]
  - Gait disturbance [Unknown]
  - Musculoskeletal pain [Unknown]
  - Pain in extremity [Unknown]
  - Road traffic accident [Unknown]
  - Osteoarthritis [Unknown]
